FAERS Safety Report 7793879-7 (Version None)
Quarter: 2011Q4

REPORT INFORMATION
  Report Type: 
  Country: None (occurrence: None)
  Receive Date: 20111004
  Receipt Date: 20110926
  Transmission Date: 20120403
  Serious: No
  Sender: FDA-Public Use
  Company Number: US-BIOGENIDEC-2010BI011219

PATIENT
  Sex: Female

DRUGS (1)
  1. TYSABRI [Suspect]
     Indication: MULTIPLE SCLEROSIS
     Route: 042
     Dates: start: 20091221

REACTIONS (9)
  - DIARRHOEA [None]
  - MUSCULOSKELETAL DISORDER [None]
  - SENSATION OF HEAVINESS [None]
  - MOBILITY DECREASED [None]
  - GAIT DISTURBANCE [None]
  - MEMORY IMPAIRMENT [None]
  - DYSURIA [None]
  - DRUG INEFFECTIVE [None]
  - FATIGUE [None]
